FAERS Safety Report 6476477-7 (Version None)
Quarter: 2009Q4

REPORT INFORMATION
  Report Type: 
  Country: None (occurrence: None)
  Receive Date: 20091207
  Receipt Date: 20091203
  Transmission Date: 20100525
  Serious: Yes (Death, Congenital Anomaly)
  Sender: FDA-Public Use
  Company Number: NO-ASTRAZENECA-2007SE00031

PATIENT
  Age: 0 Day
  Sex: Male

DRUGS (2)
  1. ATACAND [Suspect]
     Dosage: DRUG USED BY MOTHER FOR MIN. 6 MONTHS PRIOR TO PREGNANCY. FETUS EXPOSED THR. WHOLE PREGNANCY.
     Route: 064
  2. NORMORIX MITE [Concomitant]
     Dosage: DRUG USED BY MOTHER FOR MIN. 6 MONTHS PRIOR TO PREGNANCY. FETUS EXPOSED THR. WHOLE PREGNANCY.
     Route: 064
     Dates: end: 20061226

REACTIONS (9)
  - DEATH NEONATAL [None]
  - FOETAL GROWTH RETARDATION [None]
  - HEAD DEFORMITY [None]
  - LIMB DEFORMITY [None]
  - MATERNAL DRUGS AFFECTING FOETUS [None]
  - OLIGOHYDRAMNIOS [None]
  - PATENT DUCTUS ARTERIOSUS [None]
  - PULMONARY HYPOPLASIA [None]
  - RENAL DYSPLASIA [None]
